FAERS Safety Report 13015780 (Version 1)
Quarter: 2016Q4

REPORT INFORMATION
  Report Type: Report from Study
  Country: JP (occurrence: JP)
  Receive Date: 20161212
  Receipt Date: 20161212
  Transmission Date: 20170207
  Serious: Yes (Other)
  Sender: FDA-Public Use
  Company Number: JP-ROCHE-GNE293875

PATIENT
  Age: 73 Year
  Sex: Female

DRUGS (1)
  1. OMALIZUMAB [Suspect]
     Active Substance: OMALIZUMAB
     Indication: ASTHMA
     Dosage: UNK
     Route: 058
     Dates: start: 20091026, end: 20091026

REACTIONS (1)
  - Status asthmaticus [Recovering/Resolving]

NARRATIVE: CASE EVENT DATE: 20091026
